FAERS Safety Report 8454303-4 (Version None)
Quarter: 2012Q2

REPORT INFORMATION
  Report Type: 
  Country: None (occurrence: None)
  Receive Date: 20120620
  Receipt Date: 20110819
  Transmission Date: 20120825
  Serious: Yes (Other)
  Sender: FDA-Public Use
  Company Number: PHHY2011NZ116912

PATIENT

DRUGS (3)
  1. ZOLEDRONIC ACID [Suspect]
     Indication: OSTEITIS DEFORMANS
     Dosage: 5 MG
     Route: 042
  2. VITAMIN D [Concomitant]
     Dosage: 400-1000 IU/D
  3. CALCIUM [Concomitant]
     Dosage: 1 G, DAY

REACTIONS (1)
  - OSTEONECROSIS [None]
